FAERS Safety Report 4945174-9 (Version None)
Quarter: 2006Q1

REPORT INFORMATION
  Report Type: 
  Country: None (occurrence: None)
  Receive Date: 20060316
  Receipt Date: 20060306
  Transmission Date: 20060701
  Serious: Yes (Other)
  Sender: FDA-Public Use
  Company Number: GB-JNJFOC-20060302242

PATIENT

DRUGS (2)
  1. HALOPERIDOL [Suspect]
  2. HALOPERIDOL [Suspect]
     Indication: DRUG USE FOR UNKNOWN INDICATION

REACTIONS (2)
  - CORNEAL DISORDER [None]
  - GALACTORRHOEA [None]
